FAERS Safety Report 18406149 (Version 1)
Quarter: 2020Q4

REPORT INFORMATION
  Report Type: Report from Study
  Country: JP (occurrence: JP)
  Receive Date: 20201020
  Receipt Date: 20201020
  Transmission Date: 20210114
  Serious: Yes (Other)
  Sender: FDA-Public Use
  Company Number: JP-JNJFOC-A-CH2019-194684

PATIENT
  Age: 8 Month
  Sex: Female

DRUGS (9)
  1. OPSUMIT [Suspect]
     Active Substance: MACITENTAN
     Dosage: 0.3 MG, BID
     Route: 048
     Dates: start: 20150825, end: 20150828
  2. ALDACTONE A [Concomitant]
     Active Substance: SPIRONOLACTONE
     Indication: FALLOT^S TETRALOGY
     Route: 048
     Dates: start: 20150102
  3. OXYGEN. [Concomitant]
     Active Substance: OXYGEN
     Route: 055
  4. OPSUMIT [Suspect]
     Active Substance: MACITENTAN
     Indication: PULMONARY ARTERIAL HYPERTENSION
     Dosage: 0.15 MG, BID
     Route: 048
     Dates: start: 20150817, end: 20150824
  5. FUROSEMIDE. [Concomitant]
     Active Substance: FUROSEMIDE
     Indication: FALLOT^S TETRALOGY
     Route: 048
     Dates: start: 20150102
  6. FLUITRAN [Concomitant]
     Active Substance: TRICHLORMETHIAZIDE
     Indication: FALLOT^S TETRALOGY
     Route: 048
     Dates: start: 20150911
  7. OPSUMIT [Suspect]
     Active Substance: MACITENTAN
     Dosage: 0.45 MG, BID
     Route: 048
     Dates: start: 20150829
  8. ENALAPRIL [Concomitant]
     Active Substance: ENALAPRIL
     Indication: FALLOT^S TETRALOGY
     Route: 048
     Dates: start: 20150623
  9. REVATIO [Concomitant]
     Active Substance: SILDENAFIL CITRATE
     Indication: FALLOT^S TETRALOGY
     Route: 048
     Dates: start: 20150813

REACTIONS (7)
  - Off label use [Unknown]
  - Product use issue [Unknown]
  - Hepatitis viral [Recovered/Resolved]
  - Alanine aminotransferase increased [Recovered/Resolved]
  - Aspartate aminotransferase increased [Recovered/Resolved]
  - Hepatic function abnormal [Recovered/Resolved]
  - Congestive hepatopathy [Recovered/Resolved]

NARRATIVE: CASE EVENT DATE: 20150831
